FAERS Safety Report 4383691-3 (Version None)
Quarter: 2004Q2

REPORT INFORMATION
  Report Type: 
  Country: None (occurrence: None)
  Receive Date: 20040618
  Receipt Date: 20040614
  Transmission Date: 20050107
  Serious: Yes (Hospitalization)
  Sender: FDA-Public Use
  Company Number: 001738

PATIENT
  Age: 41 Year
  Sex: Female
  Weight: 77.6 kg

DRUGS (5)
  1. CENESTIN [Suspect]
     Indication: HOT FLUSH
     Dosage: 1.00 TABLET, QD,ORAL
     Route: 048
     Dates: start: 20020401, end: 20040607
  2. WELLBUTRIN SR [Suspect]
     Indication: DEPRESSION
     Dosage: 300.00 MG, QD, ORAL
     Route: 048
     Dates: start: 20030924, end: 20040311
  3. SINGULAIR [Concomitant]
  4. LEVOTHYROXINE SODIUM [Concomitant]
  5. HYDROCHLOROTHIAZIDE [Concomitant]

REACTIONS (4)
  - ALOPECIA [None]
  - AMNESIA [None]
  - GRAND MAL CONVULSION [None]
  - INCONTINENCE [None]
